FAERS Safety Report 10615737 (Version 2)
Quarter: 2015Q1

REPORT INFORMATION
  Report Type: Spontaneous
  Country: FI (occurrence: FI)
  Receive Date: 20141201
  Receipt Date: 20150115
  Transmission Date: 20150720
  Serious: Yes (Other)
  Sender: FDA-Public Use
  Company Number: FI-SA-2014SA159489

PATIENT
  Sex: Female

DRUGS (2)
  1. ARAVA [Suspect]
     Active Substance: LEFLUNOMIDE
     Dosage: LEFLUNOMIDE (1 TAB/DAY-UNK DOSE)  TAKEN BY THE FATHER FROM 2005 TO JUL-2007.
     Route: 001
  2. ETANERCEPT [Suspect]
     Active Substance: ETANERCEPT
     Dosage: ETANERCEPT TAKEN BY THE FATHER (1 INJECTION EVERY 10 DAYS) FROM 2005 AND ONGOING
     Route: 065

REACTIONS (2)
  - Exposure via father [Unknown]
  - Abortion spontaneous [Unknown]

NARRATIVE: CASE EVENT DATE: 2014
